FAERS Safety Report 19057945 (Version 1)
Quarter: 2021Q1

REPORT INFORMATION
  Report Type: Spontaneous
  Country: US (occurrence: US)
  Receive Date: 20210325
  Receipt Date: 20210325
  Transmission Date: 20210420
  Serious: Yes (Other)
  Sender: FDA-Public Use
  Company Number: None

PATIENT
  Sex: Female

DRUGS (1)
  1. QUETIAPINE FUMARATE 50 MG TABLETS [Suspect]
     Active Substance: QUETIAPINE FUMARATE

REACTIONS (2)
  - Restlessness [None]
  - Muscle twitching [None]
